FAERS Safety Report 5534988-2 (Version None)
Quarter: 2007Q4

REPORT INFORMATION
  Report Type: 
  Country: None (occurrence: None)
  Receive Date: 20071120
  Receipt Date: 20070904
  Transmission Date: 20080405
  Serious: No
  Sender: FDA-Public Use
  Company Number: WAES 0709USA00277

PATIENT
  Age: 61 Year
  Sex: Female

DRUGS (6)
  1. JANUVIA [Suspect]
     Indication: DIABETES MELLITUS
     Dosage: 100 MG/DAILY/PO
     Route: 048
     Dates: start: 20070701
  2. DYAZIDE [Concomitant]
  3. SINGULAIR [Concomitant]
  4. STARLIX [Concomitant]
  5. VASOTEC [Concomitant]
  6. ZOCOR [Concomitant]

REACTIONS (1)
  - DRUG INEFFECTIVE [None]
